FAERS Safety Report 6553796-7 (Version None)
Quarter: 2010Q1

REPORT INFORMATION
  Report Type: 
  Country: None (occurrence: None)
  Receive Date: 20100127
  Receipt Date: 20100115
  Transmission Date: 20100710
  Serious: Yes (Other)
  Sender: FDA-Public Use
  Company Number: US-BRISTOL-MYERS SQUIBB COMPANY-14946198

PATIENT
  Age: 72 Year
  Sex: Male
  Weight: 91 kg

DRUGS (12)
  1. CETUXIMAB [Suspect]
     Indication: TRANSITIONAL CELL CARCINOMA
     Dosage: RECENT INF:14JAN10 (5TH CYC)
     Route: 042
     Dates: start: 20090909
  2. CISPLATIN [Suspect]
     Indication: TRANSITIONAL CELL CARCINOMA
     Dosage: RECENT INF:14JAN10 (5TH CYC)
     Route: 042
     Dates: start: 20090909
  3. GEMCITABINE [Suspect]
     Indication: TRANSITIONAL CELL CARCINOMA
     Dosage: RECENT INF:14JAN10 (5TH CYC)
     Route: 042
     Dates: start: 20090911
  4. CALCIUM CITRATE [Concomitant]
     Route: 065
  5. VITAMIN D3 [Concomitant]
  6. METOPROLOL TARTRATE [Concomitant]
     Route: 065
  7. MINOCYCLINE HCL [Concomitant]
     Route: 065
  8. OMEPRAZOLE [Concomitant]
     Route: 065
  9. PAROXETINE HCL [Concomitant]
     Route: 065
  10. ZANTAC [Concomitant]
     Route: 065
  11. MULTI-VITAMIN [Concomitant]
     Route: 048
  12. FISH OIL [Concomitant]
     Route: 065

REACTIONS (1)
  - PULMONARY EMBOLISM [None]
